FAERS Safety Report 22647778 (Version 1)
Quarter: 2023Q2

REPORT INFORMATION
  Report Type: Spontaneous
  Country: US (occurrence: US)
  Receive Date: 20230628
  Receipt Date: 20230628
  Transmission Date: 20230722
  Serious: Yes (Other)
  Sender: FDA-Public Use
  Company Number: US-AMGEN-USASP2023108828

PATIENT

DRUGS (1)
  1. BLINCYTO [Suspect]
     Active Substance: BLINATUMOMAB
     Indication: Product used for unknown indication
     Dosage: UNK
     Route: 065

REACTIONS (9)
  - Nausea [Recovered/Resolved]
  - Pyrexia [Recovering/Resolving]
  - Muscle disorder [Unknown]
  - Emotional disorder [Unknown]
  - Skin irritation [Unknown]
  - Skin burning sensation [Unknown]
  - Asthenia [Unknown]
  - Insomnia [Recovering/Resolving]
  - Bone pain [Unknown]
